FAERS Safety Report 6032157-3 (Version None)
Quarter: 2009Q1

REPORT INFORMATION
  Report Type: 
  Country: None (occurrence: None)
  Receive Date: 20090107
  Receipt Date: 20081223
  Transmission Date: 20090719
  Serious: Yes (Hospitalization)
  Sender: FDA-Public Use
  Company Number: 2008003346

PATIENT
  Age: 68 Year
  Sex: Male

DRUGS (6)
  1. ERLOTINIB (ERLOTINIB) (TABLET) (ERLOTINIB) [Suspect]
     Indication: NON-SMALL CELL LUNG CANCER
     Dosage: 150 MG, QD, ORAL
     Route: 048
     Dates: start: 20080818, end: 20080929
  2. BEVACIAUMAB [Suspect]
     Dates: start: 20080818, end: 20080908
  3. GEMZAR [Suspect]
     Dates: start: 20081007, end: 20081029
  4. CARBOPLATIN [Suspect]
     Dates: start: 20081007, end: 20081029
  5. METAMIZOLE (METAMIZOLE) [Suspect]
  6. ACETAMINOPHEN [Concomitant]

REACTIONS (3)
  - DISEASE PROGRESSION [None]
  - DYSPHAGIA [None]
  - LYMPHOEDEMA [None]
